FAERS Safety Report 21442089 (Version 1)
Quarter: 2022Q4

REPORT INFORMATION
  Report Type: Spontaneous
  Country: US (occurrence: US)
  Receive Date: 20221011
  Receipt Date: 20221011
  Transmission Date: 20230113
  Serious: No
  Sender: FDA-Public Use
  Company Number: US-Sprout Pharmaceuticals, Inc.-2022SP000104

PATIENT
  Age: 38 Year
  Sex: Female

DRUGS (1)
  1. ADDYI [Suspect]
     Active Substance: FLIBANSERIN
     Indication: Loss of libido
     Route: 048
     Dates: start: 20220411, end: 20220411

REACTIONS (4)
  - Restlessness [Recovered/Resolved]
  - Tachyphrenia [Recovered/Resolved]
  - Nausea [Recovered/Resolved]
  - Middle insomnia [Recovered/Resolved]

NARRATIVE: CASE EVENT DATE: 20220412
